FAERS Safety Report 11664104 (Version 1)
Quarter: 2015Q4

REPORT INFORMATION
  Report Type: Spontaneous
  Country: US (occurrence: None)
  Receive Date: 20151026
  Receipt Date: 20151026
  Transmission Date: 20160304
  Serious: Yes (Disabling)
  Sender: FDA-Public Use
  Company Number: None

PATIENT
  Age: 60 Year
  Sex: Female
  Weight: 55.34 kg

DRUGS (19)
  1. PLAQUENIL [Concomitant]
     Active Substance: HYDROXYCHLOROQUINE SULFATE
  2. VITAMIN D [Concomitant]
     Active Substance: CHOLECALCIFEROL
  3. CENTRUM SILVER [Concomitant]
     Active Substance: MINERALS\VITAMINS
  4. PRESERVISION [Concomitant]
     Active Substance: MINERALS\VITAMINS
  5. CALCIUM [Concomitant]
     Active Substance: CALCIUM
  6. VIT B 50 COMPLEX [Concomitant]
  7. PRILOSEC [Concomitant]
     Active Substance: OMEPRAZOLE MAGNESIUM
  8. ARIMIDEX [Concomitant]
     Active Substance: ANASTROZOLE
  9. ALBUTEROL. [Concomitant]
     Active Substance: ALBUTEROL
  10. ZOMIG [Concomitant]
     Active Substance: ZOLMITRIPTAN
  11. ADVAIR HFA [Concomitant]
     Active Substance: FLUTICASONE PROPIONATE\SALMETEROL XINAFOATE
  12. ASPIRIN FREE EXCEDRIN [Concomitant]
  13. GLUCOSAMINE AND CHONDRITIN [Concomitant]
  14. GAVISCON [Concomitant]
     Active Substance: ALUMINUM HYDROXIDE\MAGNESIUM CARBONATE
  15. DULOXETINE DELAYED-RELEASE [Suspect]
     Active Substance: DULOXETINE HYDROCHLORIDE
     Indication: DEPRESSION
     Dosage: 1 PILL ONCE DAILY TAKEN BY MOUTH
     Route: 048
     Dates: start: 20150629, end: 20151008
  16. MIRAPEX [Concomitant]
     Active Substance: PRAMIPEXOLE DIHYDROCHLORIDE
  17. VITAMIN E [Concomitant]
     Active Substance: .ALPHA.-TOCOPHEROL
  18. ARTIFICIAL TEARS [Concomitant]
     Active Substance: GLYCERIN\HYPROMELLOSES\POLYETHYLENE GLYCOL 400
  19. SINGULAIR [Concomitant]
     Active Substance: MONTELUKAST SODIUM

REACTIONS (8)
  - Nystagmus [None]
  - Asthenia [None]
  - Somnolence [None]
  - Nausea [None]
  - Dizziness [None]
  - Balance disorder [None]
  - Restless legs syndrome [None]
  - Migraine [None]

NARRATIVE: CASE EVENT DATE: 20151008
